FAERS Safety Report 26020407 (Version 1)
Quarter: 2025Q4

REPORT INFORMATION
  Report Type: Spontaneous
  Country: TR (occurrence: TR)
  Receive Date: 20251110
  Receipt Date: 20251110
  Transmission Date: 20260117
  Serious: Yes (Life-Threatening, Hospitalization)
  Sender: ACCORD
  Company Number: TR-Accord-512033-01

PATIENT
  Age: 35 Year
  Sex: Male

DRUGS (17)
  1. CAPECITABINE [Suspect]
     Active Substance: CAPECITABINE
     Indication: Rectal adenocarcinoma
     Dosage: ON DAYS 1-14, REPEATED EVERY 21 DAYS
     Route: 048
     Dates: start: 2023, end: 2023
  2. OCTREOTIDE [Suspect]
     Active Substance: OCTREOTIDE
     Indication: Diarrhoea
     Dates: start: 2023
  3. CASPOFUNGIN [Concomitant]
     Active Substance: CASPOFUNGIN
  4. FILGRASTIM [Concomitant]
     Active Substance: FILGRASTIM
     Indication: Neutropenia
     Dates: start: 2023
  5. FLUCONAZOLE [Concomitant]
     Active Substance: FLUCONAZOLE
     Indication: Antifungal prophylaxis
  6. GANCICLOVIR [Concomitant]
     Active Substance: GANCICLOVIR
     Indication: Oral herpes
  7. GLUTAMIN [Concomitant]
     Dates: start: 2023
  8. LINEZOLID [Concomitant]
     Active Substance: LINEZOLID
     Indication: Colitis
  9. LOPERAMIDE [Concomitant]
     Active Substance: LOPERAMIDE
     Route: 048
     Dates: start: 2023
  10. METRONIDAZOLE [Concomitant]
     Active Substance: METRONIDAZOLE
     Dates: start: 2023
  11. MEROPENEM [Concomitant]
     Active Substance: MEROPENEM
     Indication: Colitis
  12. NYSTATIN [Concomitant]
     Active Substance: NYSTATIN
     Indication: Candida infection
     Route: 048
     Dates: start: 2023
  13. OXALIPLATIN [Concomitant]
     Active Substance: OXALIPLATIN
     Indication: Rectal adenocarcinoma
     Dosage: ON DAY 1, REPEATED EVERY 21 DAYS
     Dates: start: 2023, end: 2023
  14. PIPERACILLIN SODIUM\TAZOBACTAM SODIUM [Concomitant]
     Active Substance: PIPERACILLIN SODIUM\TAZOBACTAM SODIUM
     Dates: start: 2023
  15. SODIUM CHLORIDE [Concomitant]
     Active Substance: SODIUM CHLORIDE
     Dosage: INTRAVENOUS (IV) 0.9% NACL
     Dates: start: 2023
  16. VANCOMYCIN [Concomitant]
     Active Substance: VANCOMYCIN
     Indication: Colitis
     Route: 048
  17. LOPERAMIDE [Concomitant]
     Active Substance: LOPERAMIDE
     Route: 048
     Dates: start: 2023

REACTIONS (1)
  - Megacolon [Recovered/Resolved]

NARRATIVE: CASE EVENT DATE: 20230101
